FAERS Safety Report 4680598-9 (Version None)
Quarter: 2005Q2

REPORT INFORMATION
  Report Type: 
  Country: None (occurrence: None)
  Receive Date: 20050531
  Receipt Date: 20041130
  Transmission Date: 20051028
  Serious: Yes (Hospitalization, Other)
  Sender: FDA-Public Use
  Company Number: 2004089694

PATIENT
  Age: 39 Year
  Sex: Female

DRUGS (2)
  1. SOLU-MEDROL [Suspect]
     Indication: ILL-DEFINED DISORDER
     Dosage: UNKNOWN
     Route: 065
  2. GLATIRAMER ACETATE (GLATIRAMER ACETATE) [Concomitant]

REACTIONS (1)
  - HYPERSENSITIVITY [None]
